FAERS Safety Report 4433567-8 (Version None)
Quarter: 2004Q3

REPORT INFORMATION
  Report Type: 
  Country: None (occurrence: None)
  Receive Date: 20040824
  Receipt Date: 20040812
  Transmission Date: 20050211
  Serious: Yes (Hospitalization, Other)
  Sender: FDA-Public Use
  Company Number: HQWYE222112AUG04

PATIENT
  Age: 4 Year
  Sex: Male

DRUGS (6)
  1. CHILDREN'S ADVIL [Suspect]
     Indication: PYREXIA
     Dosage: ORAL
     Route: 048
     Dates: start: 20040621, end: 20040623
  2. MUCICLAR (CARBOCISTEIN, ) [Suspect]
     Dates: start: 20040621
  3. ACETAMINOPHEN [Suspect]
     Indication: PYREXIA
  4. RHINOFLUIMUCIL (ACETYLCYSTEINE/BENZALKONIUM CHLORIDE/TUAMINOHEPTANE, ) [Suspect]
     Dosage: INTRANASAL
     Route: 045
     Dates: start: 20040623, end: 20040626
  5. VOLTAREN [Suspect]
     Dates: start: 20040623, end: 20040626
  6. CEFUROXIME AXETIL [Suspect]
     Dates: start: 20040623, end: 20040626

REACTIONS (3)
  - GENERAL PHYSICAL HEALTH DETERIORATION [None]
  - PLEURISY [None]
  - PNEUMONIA PNEUMOCOCCAL [None]
